FAERS Safety Report 17761672 (Version 1)
Quarter: 2020Q2

REPORT INFORMATION
  Report Type: Spontaneous
  Country: FR (occurrence: FR)
  Receive Date: 20200508
  Receipt Date: 20200508
  Transmission Date: 20200714
  Serious: Yes (Life-Threatening, Hospitalization)
  Sender: FDA-Public Use
  Company Number: FR-CADILA HEALTHCARE LIMITED-FR-ZYDUS-025411

PATIENT

DRUGS (5)
  1. BISOPROLOL [Suspect]
     Active Substance: BISOPROLOL
     Indication: VENTRICULAR TACHYCARDIA
     Dosage: 1.25 MILLIGRAM,(INTERVAL :1 DAYS)
     Dates: start: 201806, end: 20180705
  2. BUSILVEX [Suspect]
     Active Substance: BUSULFAN
     Indication: BONE MARROW CONDITIONING REGIMEN
     Dosage: 40 MILLIGRAM,(INTERVAL :1 DAYS)
     Dates: start: 20180628, end: 20180701
  3. FLUDARA [Suspect]
     Active Substance: FLUDARABINE PHOSPHATE
     Indication: BONE MARROW CONDITIONING REGIMEN
     Dosage: 47 MILLIGRAM,(INTERVAL :1 DAYS)
     Dates: start: 20180628, end: 20180702
  4. THYMOGLOBULINE [Suspect]
     Active Substance: LAPINE T-LYMPHOCYTE IMMUNE GLOBULIN
     Indication: BONE MARROW CONDITIONING REGIMEN
     Dosage: 125 MILLIGRAM,(INTERVAL :1 DAYS)
     Dates: start: 20180702, end: 20180703
  5. RAMIPRIL. [Suspect]
     Active Substance: RAMIPRIL
     Indication: PRODUCT USED FOR UNKNOWN INDICATION
     Dosage: (INTERVAL :1 DAYS)
     Dates: start: 2018, end: 20180705

REACTIONS (2)
  - Cardiogenic shock [Recovered/Resolved]
  - Ventricular dysfunction [Recovering/Resolving]

NARRATIVE: CASE EVENT DATE: 20180705
